FAERS Safety Report 13364214 (Version 1)
Quarter: 2017Q1

REPORT INFORMATION
  Report Type: Spontaneous
  Country: US (occurrence: US)
  Receive Date: 20170322
  Receipt Date: 20170322
  Transmission Date: 20170429
  Serious: Yes (Hospitalization)
  Sender: FDA-Public Use
  Company Number: None

PATIENT
  Age: 9 Year
  Sex: Male
  Weight: 28.1 kg

DRUGS (6)
  1. CYCLOPHOSPHAMIDE. [Suspect]
     Active Substance: CYCLOPHOSPHAMIDE
     Dates: end: 20170305
  2. VINCRISTINE SULFATE. [Suspect]
     Active Substance: VINCRISTINE SULFATE
     Dates: end: 20170215
  3. DEXAMETHASONE. [Suspect]
     Active Substance: DEXAMETHASONE
     Dates: end: 20170219
  4. METHOTREXATE. [Suspect]
     Active Substance: METHOTREXATE
     Dosage: 15 MG GIVEN IT, 1050 MG GIVEN IV
     Dates: end: 20170222
  5. ERWINIA ASPARAGINASE [Suspect]
     Active Substance: ASPARAGINASE ERWINIA CHRYSANTHEMI
     Dates: end: 20170308
  6. ETOPOSIDE (VP-16) [Suspect]
     Active Substance: ETOPOSIDE

REACTIONS (15)
  - Staphylococcus test positive [None]
  - Blood electrolytes abnormal [None]
  - Pyrexia [None]
  - Hypophagia [None]
  - Neutropenia [None]
  - Cardiac output decreased [None]
  - Cardiac failure [None]
  - Cardiomyopathy [None]
  - Haematochezia [None]
  - Mucosal inflammation [None]
  - Clostridium test positive [None]
  - Sepsis [None]
  - Ventricular dysfunction [None]
  - Abdominal pain [None]
  - Escherichia test positive [None]

NARRATIVE: CASE EVENT DATE: 20170315
